FAERS Safety Report 9536931 (Version 1)
Quarter: 2013Q3

REPORT INFORMATION
  Report Type: Spontaneous
  Country: US (occurrence: None)
  Receive Date: 20130918
  Receipt Date: 20130918
  Transmission Date: 20140515
  Serious: Yes (Life-Threatening)
  Sender: FDA-Public Use
  Company Number: None

PATIENT
  Age: 67 Year
  Sex: Female
  Weight: 85 kg

DRUGS (17)
  1. FENTANYL [Suspect]
     Indication: SEDATION
     Dosage: 150 MCG INTRAVENOUS
     Route: 042
     Dates: start: 20110623
  2. MIDAZOLAM [Suspect]
     Indication: SEDATION
     Dosage: 2 MG INTRAVENOUS
     Route: 042
     Dates: start: 20110623
  3. CALCIUM GLUCONATE, POLYSTYRENE SULFONATE [Concomitant]
  4. HEPARIN, [Concomitant]
  5. PREDNISONE, 10 MG [Concomitant]
  6. OXYCODONE, [Concomitant]
  7. CHOECALCIFEROL, [Concomitant]
  8. DOCUSATE, [Concomitant]
  9. SENNA, [Concomitant]
  10. LISINOPRIL, [Concomitant]
  11. LANSOPRASOLE, [Concomitant]
  12. PANCREALIPASE, [Concomitant]
  13. SIMVASTATIN, [Concomitant]
  14. SEVELAMER, [Concomitant]
  15. METOPROLOL, [Concomitant]
  16. DIPHENHYDRAMINE, [Concomitant]
  17. SODIUM POLYSTYRENE SULFONATE [Concomitant]

REACTIONS (1)
  - Arteriovenous fistula thrombosis [None]
